FAERS Safety Report 9774546 (Version 1)
Quarter: 2013Q4

REPORT INFORMATION
  Report Type: Spontaneous
  Country: US (occurrence: None)
  Receive Date: 20131219
  Receipt Date: 20131219
  Transmission Date: 20140711
  Serious: Yes (Hospitalization)
  Sender: FDA-Public Use
  Company Number: None

PATIENT
  Age: 9 Month
  Sex: Female
  Weight: 42 kg

DRUGS (57)
  1. MERCAPTOPURINE [Suspect]
  2. METHOTREXATE [Suspect]
  3. VINCRISTINE SULFATE [Suspect]
  4. DEXAMETHASONE [Suspect]
  5. ACETAZOLAMIDE [Concomitant]
  6. ALBUMIN [Concomitant]
  7. ANAKINRA [Concomitant]
  8. ATIVAN [Concomitant]
  9. BACTRIM [Concomitant]
  10. BENADRYL [Concomitant]
  11. CALCIUM CHLORIDE [Concomitant]
  12. CALCIUM GLUCONATE [Concomitant]
  13. CASPOFUNGIN [Concomitant]
  14. CEFEPIME [Concomitant]
  15. CIPROFLOXACIN [Concomitant]
  16. CISATRACURIUM [Concomitant]
  17. CREON [Concomitant]
  18. DEXAMETHASONE [Concomitant]
  19. DEXMEDETOMIDINE [Concomitant]
  20. DIAMOX [Concomitant]
  21. DSILAUDID [Concomitant]
  22. DIPHENHYDRAMINE [Concomitant]
  23. DOPAMINE [Concomitant]
  24. ELAVIL [Concomitant]
  25. EPINEPHRINE [Concomitant]
  26. ESOMEPRAZOLE [Concomitant]
  27. FENTANYL [Concomitant]
  28. FILGRASTIM [Concomitant]
  29. FLAGYL [Concomitant]
  30. GENTAMICIN [Concomitant]
  31. HYDROCORTISONE [Concomitant]
  32. INSULIN [Concomitant]
  33. KYTRIL [Concomitant]
  34. LASIX [Concomitant]
  35. LIDOCAINE [Concomitant]
  36. MS CONTIN [Concomitant]
  37. MAGNESIUM SULFATE [Concomitant]
  38. MEROPENEM [Concomitant]
  39. METHADONE [Concomitant]
  40. METRONIDAZOLE [Concomitant]
  41. NEXIUM [Concomitant]
  42. NIMBEX [Concomitant]
  43. NOREPINEPHRINE [Concomitant]
  44. NOVO-SEVEN [Concomitant]
  45. PEPCID [Concomitant]
  46. PERIACTIN [Concomitant]
  47. PHYTONADIONE [Concomitant]
  48. POTASSIUM CHLORIDE [Concomitant]
  49. POTASSIUM PHOSPHATE [Concomitant]
  50. PRECEDEX [Concomitant]
  51. PROLYTIC [Concomitant]
  52. RANITIDINE [Concomitant]
  53. SCOPLAMINE [Concomitant]
  54. SODIUM BICARBONATE [Concomitant]
  55. VANCOMYCIN [Concomitant]
  56. VASOPRESSIN [Concomitant]
  57. ZOFRAN [Concomitant]

REACTIONS (32)
  - Pancreatitis necrotising [None]
  - Duodenal perforation [None]
  - Pancreatic pseudocyst [None]
  - Multi-organ failure [None]
  - Septic shock [None]
  - Respiratory failure [None]
  - Intestinal perforation [None]
  - Cholecystitis [None]
  - Cholelithiasis [None]
  - Pancytopenia [None]
  - Klebsiella sepsis [None]
  - Blood lactic acid increased [None]
  - Abdominal compartment syndrome [None]
  - Hypotension [None]
  - Ventricular tachycardia [None]
  - Gastrointestinal haemorrhage [None]
  - Coagulopathy [None]
  - Pleural effusion [None]
  - Fluid retention [None]
  - Mitral valve incompetence [None]
  - Hepatic failure [None]
  - Histiocytosis haematophagic [None]
  - Hepatic cyst [None]
  - Ascites [None]
  - Candida test positive [None]
  - Enterococcal infection [None]
  - Nervous system disorder [None]
  - Electroencephalogram abnormal [None]
  - Intraventricular haemorrhage [None]
  - Nuclear magnetic resonance imaging brain abnormal [None]
  - Wound [None]
  - Renal impairment [None]
